FAERS Safety Report 17949192 (Version 1)
Quarter: 2020Q2

REPORT INFORMATION
  Report Type: Spontaneous
  Country: CA (occurrence: CA)
  Receive Date: 20200626
  Receipt Date: 20200626
  Transmission Date: 20200714
  Serious: Yes (Death, Other)
  Sender: FDA-Public Use
  Company Number: CA-PFIZER INC-2017262296

PATIENT
  Age: 60 Year
  Sex: Male

DRUGS (4)
  1. FOLIC ACID. [Concomitant]
     Active Substance: FOLIC ACID
     Dosage: 5 MG DAILY, 5 DAYS A WEEK
  2. METHOTREXATE. [Concomitant]
     Active Substance: METHOTREXATE
     Indication: RHEUMATOID ARTHRITIS
     Dosage: 20 MG, WEEKLY (2.5MG ORAL TABLET, 8 TABLETS PO ONCE A WEEK EVERY TUESDAY)
     Route: 048
     Dates: start: 200701
  3. ADALAT CC [Concomitant]
     Active Substance: NIFEDIPINE
     Dosage: 30 MG
     Route: 048
  4. XELJANZ [Suspect]
     Active Substance: TOFACITINIB CITRATE
     Indication: RHEUMATOID ARTHRITIS
     Dosage: 5 MG, 2X/DAY
     Route: 048
     Dates: start: 20161215

REACTIONS (8)
  - Pain in extremity [Not Recovered/Not Resolved]
  - Sleep disorder [Not Recovered/Not Resolved]
  - Fibromyalgia [Unknown]
  - Fatigue [Unknown]
  - Overweight [Unknown]
  - Drug ineffective [Recovered/Resolved]
  - Death [Fatal]
  - Pain [Unknown]
